FAERS Safety Report 11069155 (Version 2)
Quarter: 2015Q2

REPORT INFORMATION
  Report Type: Spontaneous
  Country: FR (occurrence: FR)
  Receive Date: 20150427
  Receipt Date: 20150428
  Transmission Date: 20150821
  Serious: Yes (Death, Other)
  Sender: FDA-Public Use
  Company Number: PHHY2015FR046785

PATIENT
  Age: 51 Year
  Sex: Male

DRUGS (9)
  1. CYTARABINE. [Concomitant]
     Active Substance: CYTARABINE
     Indication: MYELOID LEUKAEMIA
     Route: 041
  2. CICLOSPORIN [Suspect]
     Active Substance: CYCLOSPORINE
     Indication: PROPHYLAXIS AGAINST GRAFT VERSUS HOST DISEASE
     Route: 065
  3. CLOFARABINE [Concomitant]
     Active Substance: CLOFARABINE
     Indication: MYELOID LEUKAEMIA
     Route: 041
  4. MYCOPHENOLATE MOFETIL. [Concomitant]
     Active Substance: MYCOPHENOLATE MOFETIL
     Indication: BONE MARROW TRANSPLANT
  5. DAUNORUBICINE [Concomitant]
     Active Substance: DAUNORUBICIN
     Indication: MYELOID LEUKAEMIA
     Route: 065
  6. CYCLOPHOSPHAMIDE. [Concomitant]
     Active Substance: CYCLOPHOSPHAMIDE
     Indication: MYELOID LEUKAEMIA
     Route: 065
  7. MYCOPHENOLATE MOFETIL. [Concomitant]
     Active Substance: MYCOPHENOLATE MOFETIL
     Indication: PROPHYLAXIS AGAINST GRAFT VERSUS HOST DISEASE
     Route: 065
  8. CICLOSPORIN [Suspect]
     Active Substance: CYCLOSPORINE
     Indication: BONE MARROW TRANSPLANT
  9. FLUDARABINE [Suspect]
     Active Substance: FLUDARABINE PHOSPHATE
     Indication: MYELOID LEUKAEMIA
     Dosage: 40 MG/M2, UNK
     Route: 065

REACTIONS (12)
  - Encephalopathy [Unknown]
  - Blindness [Unknown]
  - Death [Fatal]
  - Extrapyramidal disorder [Unknown]
  - Vision blurred [Unknown]
  - Visual acuity reduced [Unknown]
  - Confusional state [Unknown]
  - Lethargy [Unknown]
  - Coma [Unknown]
  - Ocular toxicity [Unknown]
  - Frontotemporal dementia [Unknown]
  - General physical health deterioration [Unknown]
